FAERS Safety Report 6899263-2 (Version None)
Quarter: 2010Q3

REPORT INFORMATION
  Report Type: 
  Country: None (occurrence: None)
  Receive Date: 20100802
  Receipt Date: 20080301
  Transmission Date: 20110219
  Serious: Yes (Other)
  Sender: FDA-Public Use
  Company Number: US-PFIZER INC-2007104977

PATIENT
  Sex: Female
  Weight: 65.8 kg

DRUGS (4)
  1. LYRICA [Suspect]
     Indication: FIBROMYALGIA
     Route: 048
     Dates: start: 20070814, end: 20071108
  2. CYMBALTA [Concomitant]
  3. AMBIEN [Concomitant]
  4. ULTRAM [Concomitant]

REACTIONS (2)
  - ANGIOEDEMA [None]
  - DYSPHONIA [None]
